FAERS Safety Report 8437294-1 (Version None)
Quarter: 2012Q2

REPORT INFORMATION
  Report Type: 
  Country: None (occurrence: None)
  Receive Date: 20120614
  Receipt Date: 20120308
  Transmission Date: 20120825
  Serious: No
  Sender: FDA-Public Use
  Company Number: US-AMGEN-USASP2011033580

PATIENT
  Age: 84 Year
  Sex: Female

DRUGS (7)
  1. MULTIVITAMIN                       /00097801/ [Concomitant]
     Dosage: UNK
  2. CALCIUM WITH VITAMIN D             /00944201/ [Concomitant]
  3. THYROLAR [Concomitant]
  4. VITAMIN D [Concomitant]
  5. PROLIA [Suspect]
     Indication: OSTEOPOROSIS POSTMENOPAUSAL
     Dosage: 60 MG, UNK
     Dates: start: 20101201
  6. METOPROLOL TARTRATE [Concomitant]
  7. NAPROXEN (ALEVE) [Concomitant]
     Dosage: UNK

REACTIONS (1)
  - GAIT DISTURBANCE [None]
